FAERS Safety Report 9805981 (Version 1)
Quarter: 2014Q1

REPORT INFORMATION
  Report Type: Spontaneous
  Country: US (occurrence: None)
  Receive Date: 20140108
  Receipt Date: 20140108
  Transmission Date: 20141002
  Serious: Yes (Hospitalization)
  Sender: FDA-Public Use
  Company Number: None

PATIENT
  Age: 64 Year
  Sex: Male
  Weight: 82.1 kg

DRUGS (1)
  1. ENOXAPARIN (GENERIC) [Suspect]
     Indication: HEART VALVE REPLACEMENT
     Route: 058
     Dates: start: 20131011, end: 20131017

REACTIONS (1)
  - Haemorrhage [None]
